FAERS Safety Report 6255426-0 (Version None)
Quarter: 2009Q3

REPORT INFORMATION
  Report Type: 
  Country: None (occurrence: None)
  Receive Date: 20090702
  Receipt Date: 20090618
  Transmission Date: 20100115
  Serious: Yes (Other)
  Sender: FDA-Public Use
  Company Number: MX-GENENTECH-257919

PATIENT
  Sex: Female
  Weight: 60 kg

DRUGS (3)
  1. BEVACIZUMAB [Suspect]
     Indication: NON-SMALL CELL LUNG CANCER
     Dosage: 600 MG, Q3W
     Route: 042
     Dates: start: 20070213
  2. PACLITAXEL [Suspect]
     Indication: NON-SMALL CELL LUNG CANCER
     Dosage: 90 MG, Q3W
     Route: 042
     Dates: start: 20070213
  3. CISPLATIN [Suspect]
     Indication: NON-SMALL CELL LUNG CANCER
     Dosage: 30 MG, Q3W
     Route: 042
     Dates: start: 20070213

REACTIONS (1)
  - PLEURAL EFFUSION [None]
